FAERS Safety Report 6567095-0 (Version None)
Quarter: 2010Q1

REPORT INFORMATION
  Report Type: 
  Country: None (occurrence: None)
  Receive Date: 20100127
  Receipt Date: 20100111
  Transmission Date: 20100710
  Serious: Yes (Other)
  Sender: FDA-Public Use
  Company Number: PAR_03327_2010

PATIENT
  Age: 44 Year
  Sex: Female

DRUGS (13)
  1. ALPRAZOLAM [Suspect]
     Indication: ANXIETY
     Dosage: MAXIMUM DOSE OF 8 MG/DAY
     Dates: start: 20010101
  2. IBUPROFEN [Suspect]
     Indication: MIGRAINE
     Dosage: UP TO 600 MG/DAY
     Dates: start: 19720101
  3. ACETAMINOPHEN [Suspect]
     Indication: MIGRAINE
     Dosage: UP TO 2,500 MG/DAY
     Dates: start: 19720101
  4. CLONAZEPAM [Concomitant]
  5. OXITRIPTAN [Concomitant]
  6. LITHIUM CARBONATE [Concomitant]
  7. DULOXETINE [Concomitant]
  8. CLOMIPRAMINE HCL [Concomitant]
  9. PREGABALIN [Concomitant]
  10. PAROXETINE HCL [Concomitant]
  11. DULOXETINE [Concomitant]
  12. QUETIAPINE [Concomitant]
  13. CLORAZEPATE DIPOTASSIUM [Concomitant]

REACTIONS (10)
  - AMNESIA [None]
  - ANXIETY [None]
  - DISORIENTATION [None]
  - DRUG ABUSE [None]
  - DRUG DEPENDENCE [None]
  - DRUG TOXICITY [None]
  - DYSARTHRIA [None]
  - FALL [None]
  - INCORRECT DOSE ADMINISTERED [None]
  - TREATMENT NONCOMPLIANCE [None]
